FAERS Safety Report 17814478 (Version 1)
Quarter: 2020Q2

REPORT INFORMATION
  Report Type: Spontaneous
  Country: IT (occurrence: IT)
  Receive Date: 20200522
  Receipt Date: 20200522
  Transmission Date: 20200714
  Serious: Yes (Death, Other)
  Sender: FDA-Public Use
  Company Number: IT-SUN PHARMACEUTICAL INDUSTRIES LTD-2020RR-248010

PATIENT
  Age: 55 Year
  Sex: Female

DRUGS (8)
  1. GEMCITABINE. [Suspect]
     Active Substance: GEMCITABINE
     Indication: OVARIAN CANCER
     Dosage: 800 MILLIGRAM/SQ. METER, ON DAYS 1 AND 8, 6 CYCLES
     Route: 065
     Dates: start: 201602, end: 201606
  2. PACLITAXEL. [Suspect]
     Active Substance: PACLITAXEL
     Indication: OVARIAN CANCER
     Dosage: 175 MILLIGRAM/SQ. METER, 6 CYCLES
     Route: 065
  3. CARBOPLATIN. [Suspect]
     Active Substance: CARBOPLATIN
     Indication: OVARIAN CANCER
     Dosage: AUC 4, ON DAY 1, 6 CYCLES
     Route: 065
     Dates: start: 201602, end: 201606
  4. CARBOPLATIN. [Suspect]
     Active Substance: CARBOPLATIN
     Dosage: 2 CYCLES
     Route: 065
     Dates: start: 201810, end: 201911
  5. DOXORUBICIN LIPOSOME [Suspect]
     Active Substance: DOXORUBICIN
     Indication: OVARIAN CANCER
     Dosage: 40 MILLIGRAM/SQ. METER, AS THIRD-LINE CHEMOTHERAPY
     Route: 042
     Dates: start: 201808
  6. BEVACIZUMAB. [Suspect]
     Active Substance: BEVACIZUMAB
     Indication: OVARIAN CANCER
     Dosage: 15 MILLIGRAM/KILOGRAM, 6 CYCLES
     Route: 065
     Dates: start: 201602, end: 201606
  7. OLAPARIB. [Suspect]
     Active Substance: OLAPARIB
     Indication: OVARIAN CANCER
     Dosage: 300 MILLIGRAM, BID
     Route: 065
     Dates: start: 201707, end: 201804
  8. BEVACIZUMAB. [Suspect]
     Active Substance: BEVACIZUMAB
     Dosage: 15 MILLIGRAM/KILOGRAM, AS MAINTENANCE, ON DAY 1 EVERY 21 DAYS
     Route: 065

REACTIONS (7)
  - Pleural effusion [Unknown]
  - Metastases to lymph nodes [Unknown]
  - Metastases to breast [Unknown]
  - Infusion related reaction [Unknown]
  - Disease recurrence [Unknown]
  - Metastases to peritoneum [Unknown]
  - Disease progression [Fatal]
